FAERS Safety Report 22768930 (Version 3)
Quarter: 2024Q3

REPORT INFORMATION
  Report Type: Spontaneous
  Country: US (occurrence: US)
  Receive Date: 20230731
  Receipt Date: 20240701
  Transmission Date: 20241016
  Serious: No
  Sender: PFIZER
  Company Number: US-PFIZER INC-US-GBT-020937

PATIENT
  Age: 43 Year
  Sex: Female

DRUGS (2)
  1. OXBRYTA [Suspect]
     Active Substance: VOXELOTOR
     Indication: Sickle cell disease
     Dosage: 1500 MG, 1X/DAY (500MG 3 TBLETS ONCE DAILY, ORALLY)
     Route: 048
     Dates: start: 202203
  2. OXBRYTA [Suspect]
     Active Substance: VOXELOTOR
     Dosage: UNK

REACTIONS (3)
  - Asthenia [Unknown]
  - Haemoglobin decreased [Unknown]
  - Pain [Unknown]
